FAERS Safety Report 9783990 (Version 2)
Quarter: 2014Q1

REPORT INFORMATION
  Report Type: Spontaneous
  Country: FR (occurrence: FR)
  Receive Date: 20131226
  Receipt Date: 20140311
  Transmission Date: 20141002
  Serious: Yes (Other)
  Sender: FDA-Public Use
  Company Number: FR-PFIZER INC-2013364482

PATIENT
  Age: 30 Year
  Sex: Female

DRUGS (3)
  1. EFFEXOR LP [Suspect]
     Indication: ANXIETY
     Dosage: 75 MG, DAILY
     Dates: end: 201311
  2. XEROQUEL [Suspect]
     Indication: BIPOLAR DISORDER
     Dosage: 300 MG, DAILY
     Dates: end: 201311
  3. LEVOTHYROX [Concomitant]
     Dosage: 25 UG, DAILY
     Route: 048

REACTIONS (1)
  - Abortion spontaneous [Recovered/Resolved]
